FAERS Safety Report 4281965-8 (Version None)
Quarter: 2004Q1

REPORT INFORMATION
  Report Type: 
  Country: None (occurrence: None)
  Receive Date: 20040128
  Receipt Date: 20040119
  Transmission Date: 20041129
  Serious: Yes (Death, Hospitalization)
  Sender: FDA-Public Use
  Company Number: 200312250EU

PATIENT
  Age: 80 Year
  Sex: Male
  Weight: 58.2 kg

DRUGS (3)
  1. FUROSEMIDE [Suspect]
     Indication: DIURETIC THERAPY
     Dates: start: 20030416, end: 20030507
  2. AUGMENTIN '125' [Suspect]
     Indication: ANTI-INFECTIVE THERAPY
     Dates: start: 20030415, end: 20030507
  3. STUDY CODE UNBROKEN [Suspect]
     Indication: HYPERTENSION
     Dates: start: 19981002

REACTIONS (10)
  - BLOOD CREATININE ABNORMAL [None]
  - BRONCHITIS ACUTE [None]
  - CARDIAC FAILURE [None]
  - CARDIAC FAILURE CONGESTIVE [None]
  - DIARRHOEA [None]
  - DISEASE PROGRESSION [None]
  - ENTERITIS [None]
  - RENAL FAILURE [None]
  - RESPIRATORY FAILURE [None]
  - URINARY TRACT INFECTION [None]
